FAERS Safety Report 14341671 (Version 1)
Quarter: 2018Q1

REPORT INFORMATION
  Report Type: Spontaneous
  Country: US (occurrence: US)
  Receive Date: 20180102
  Receipt Date: 20180102
  Transmission Date: 20180509
  Serious: No
  Sender: FDA-Public Use
  Company Number: US-TEVA-800416ACC

PATIENT
  Sex: Female

DRUGS (1)
  1. MINOXIDIL. [Suspect]
     Active Substance: MINOXIDIL
     Dosage: FORM OF ADMINISTRATION: TOPICAL SOLUTION; HAD BEEN USING MINOXIDIL FOR 17 YEARS

REACTIONS (1)
  - Joint swelling [Not Recovered/Not Resolved]
